FAERS Safety Report 4771140-2 (Version None)
Quarter: 2005Q3

REPORT INFORMATION
  Report Type: 
  Country: None (occurrence: None)
  Receive Date: 20050912
  Receipt Date: 20050606
  Transmission Date: 20060218
  Serious: No
  Sender: FDA-Public Use
  Company Number: 2005-01131

PATIENT
  Age: 70 Year
  Sex: Male

DRUGS (3)
  1. VELCADE [Suspect]
     Indication: NON-HODGKIN'S LYMPHOMA
     Dosage: 2.50 MG, INTRAVENOUS
     Route: 042
     Dates: start: 20050419, end: 20050517
  2. VELCADE [Suspect]
     Indication: NON-HODGKIN'S LYMPHOMA
     Dosage: 2.50 MG, INTRAVENOUS
     Route: 042
     Dates: start: 20050531
  3. DECADRON [Concomitant]

REACTIONS (1)
  - HERPES ZOSTER [None]
